FAERS Safety Report 8415352-5 (Version None)
Quarter: 2012Q2

REPORT INFORMATION
  Report Type: 
  Country: None (occurrence: None)
  Receive Date: 20120606
  Receipt Date: 20120530
  Transmission Date: 20120825
  Serious: Yes (Hospitalization)
  Sender: FDA-Public Use
  Company Number: PHHY2012AU042819

PATIENT
  Sex: Female

DRUGS (9)
  1. CALICIFEROL [Concomitant]
     Indication: VITAMIN D DECREASED
     Dosage: 25 UG
  2. VALPROATE SODIUM [Concomitant]
     Indication: SCHIZOAFFECTIVE DISORDER
     Dosage: 500 MG, BID
  3. ALBUTEROL [Concomitant]
     Dosage: UNK UKN, PRN
  4. CLOZARIL [Suspect]
     Indication: SCHIZOPHRENIA
     Dosage: 250 MG
     Route: 048
     Dates: start: 20120315
  5. FLUTICASONE PROPIONATE/SALMETEROL [Concomitant]
     Dosage: UNK UKN, BID
  6. VENLAFAXINE [Concomitant]
     Indication: DEPRESSION
     Dosage: 150 MG, MANE
  7. PANTOPRAZOLE [Concomitant]
     Indication: GASTROOESOPHAGEAL REFLUX DISEASE
     Dosage: 40 MG, MANE
  8. LEVOTHYROXINE SODIUM [Concomitant]
     Indication: THYROID DISORDER
     Dosage: 50 UG
  9. ATORVASTATIN CALCIUM [Concomitant]
     Indication: BLOOD CHOLESTEROL INCREASED
     Dosage: 40 MG, MANE

REACTIONS (6)
  - BIPOLAR I DISORDER [None]
  - PSYCHOTIC DISORDER [None]
  - PARANOIA [None]
  - SOCIAL AVOIDANT BEHAVIOUR [None]
  - MALAISE [None]
  - DELUSION [None]
